FAERS Safety Report 24579110 (Version 2)
Quarter: 2025Q1

REPORT INFORMATION
  Report Type: Spontaneous
  Country: US (occurrence: US)
  Receive Date: 20241105
  Receipt Date: 20250111
  Transmission Date: 20250408
  Serious: Yes (Life-Threatening, Hospitalization, Other)
  Sender: AUROBINDO
  Company Number: US-MLMSERVICE-20241016-PI225906-00030-1

PATIENT
  Sex: Male

DRUGS (2)
  1. IBUPROFEN [Suspect]
     Active Substance: IBUPROFEN
     Indication: Product used for unknown indication
     Route: 048
     Dates: start: 202202, end: 202202
  2. DIPHENHYDRAMINE [Suspect]
     Active Substance: DIPHENHYDRAMINE
     Indication: Product used for unknown indication
     Route: 048
     Dates: start: 202202, end: 202202

REACTIONS (18)
  - Loss of consciousness [Unknown]
  - Electrocardiogram QT prolonged [Unknown]
  - Cardiac arrest [Recovered/Resolved]
  - Hyperkalaemia [Unknown]
  - Acute respiratory distress syndrome [Unknown]
  - Multiple organ dysfunction syndrome [Unknown]
  - Pulmonary sequestration [Unknown]
  - Renal impairment [Unknown]
  - Respiratory acidosis [Unknown]
  - Metabolic acidosis [Unknown]
  - Bradycardia [Recovered/Resolved]
  - Nodal rhythm [Unknown]
  - Acidosis [Unknown]
  - Hypotension [Unknown]
  - Bundle branch block right [Unknown]
  - Overdose [Unknown]
  - Coma [Unknown]
  - Aspiration [Unknown]

NARRATIVE: CASE EVENT DATE: 20220201
